FAERS Safety Report 11860128 (Version 2)
Quarter: 2016Q1

REPORT INFORMATION
  Report Type: Spontaneous
  Country: GB (occurrence: GB)
  Receive Date: 20151222
  Receipt Date: 20160104
  Transmission Date: 20160526
  Serious: Yes (Other)
  Sender: FDA-Public Use
  Company Number: GB-TEVA-620501ISR

PATIENT
  Age: 50 Year
  Sex: Female

DRUGS (4)
  1. VITAMIN K [Concomitant]
     Active Substance: PHYTONADIONE
     Indication: ANTICOAGULANT THERAPY
     Dosage: 1MG
     Route: 042
  2. VITAMIN K [Concomitant]
     Active Substance: PHYTONADIONE
     Indication: ANTICOAGULANT THERAPY
     Dosage: 1MG AND AFTER 3 DAYS, SHE WAS GIVEN 2 FURTHER DOSES OF 1 MG (ONE ADMINISTERED IV)
     Route: 048
  3. WARFARIN [Suspect]
     Active Substance: WARFARIN
     Indication: EMBOLISM VENOUS
     Dosage: 3MG WEEKDAYS AND 4MG AT WEEKENDS
     Route: 065
  4. DALTEPARIN SODIUM [Suspect]
     Active Substance: DALTEPARIN SODIUM
     Indication: ANTICOAGULANT THERAPY
     Dosage: 18000 UNITS
     Route: 058

REACTIONS (8)
  - Arthralgia [Recovered/Resolved]
  - Contusion [Recovered/Resolved]
  - Drug hypersensitivity [Recovered/Resolved]
  - International normalised ratio increased [Recovered/Resolved]
  - Epistaxis [Recovered/Resolved]
  - Headache [Recovered/Resolved]
  - Lipodystrophy acquired [Recovered/Resolved]
  - Gingival bleeding [Recovered/Resolved]
